FAERS Safety Report 8159113 (Version 2)
Quarter: 2012Q4

REPORT INFORMATION
  Report Type: 
  Country: US (occurrence: US)
  Receive Date: 20110927
  Receipt Date: 20121112
  Transmission Date: 20130627
  Serious: Yes (Death)
  Sender: FDA-Public Use
  Company Number: US-RB-032279-11

PATIENT
  Age: 0 None
  Sex: Male
  Weight: 2.64 kg

DRUGS (5)
  1. SUBUTEX [Suspect]
     Indication: PRODUCT USED FOR UNKNOWN INDICATION
     Dosage: Dosing details unknown
     Route: 064
     Dates: start: 2009, end: 20091204
  2. SUBUTEX [Suspect]
     Dosage: Dosing details unknown
     Route: 063
     Dates: start: 200912, end: 20091208
  3. XANAX [Suspect]
     Indication: PRODUCT USED FOR UNKNOWN INDICATION
     Dosage: Dosing details unknown
     Route: 064
     Dates: start: 2009, end: 20091204
  4. XANAX [Suspect]
     Dosage: Dosing details unknown
     Route: 063
     Dates: start: 200912, end: 20091208
  5. CAFFEINE [Suspect]
     Indication: PRODUCT USED FOR UNKNOWN INDICATION
     Dosage: Dosing details unknown
     Route: 065
     Dates: start: 2009, end: 200912

REACTIONS (7)
  - Foetal exposure during pregnancy [Recovered/Resolved]
  - Toxicity to various agents [Fatal]
  - Exposure during breast feeding [Recovered/Resolved]
  - Tremor neonatal [Unknown]
  - Anxiety [Unknown]
  - Drug withdrawal syndrome neonatal [Unknown]
  - Unresponsive to stimuli [Unknown]
